FAERS Safety Report 9504805 (Version 1)
Quarter: 2013Q1

REPORT INFORMATION
  Report Type: Spontaneous
  Country: DE (occurrence: None)
  Receive Date: 20130225
  Receipt Date: 20130225
  Transmission Date: 20140127
  Serious: Yes (Hospitalization)
  Sender: FDA-Public Use
  Company Number: 2012-318

PATIENT
  Age: 79 Year
  Sex: Male
  Weight: 80 kg

DRUGS (4)
  1. PRIALT (ZICONOTIDE) INTRATHECAL INFUSION [Suspect]
     Indication: NEURALGIA
     Dosage: ONCE AN HOUR
     Route: 037
     Dates: start: 20090415, end: 20120518
  2. PREGAMBLIN [Concomitant]
  3. DOXEPIN (DOXEPIN) (DOXEPIN) [Concomitant]
  4. TOLPERISONE (TOLPERISONE) [Concomitant]

REACTIONS (3)
  - Loss of consciousness [None]
  - Dizziness [None]
  - Pain [None]
